FAERS Safety Report 13243925 (Version 2)
Quarter: 2018Q1

REPORT INFORMATION
  Report Type: Spontaneous
  Country: US (occurrence: US)
  Receive Date: 20170216
  Receipt Date: 20180209
  Transmission Date: 20180508
  Serious: No
  Sender: FDA-Public Use
  Company Number: US-BAUSCH-BL-2016-011151

PATIENT
  Age: 21 Year
  Sex: Male

DRUGS (1)
  1. BENZACLIN [Suspect]
     Active Substance: BENZOYL PEROXIDE\CLINDAMYCIN PHOSPHATE
     Indication: ACNE
     Dosage: APPLY TO ACNE AT BEDTIME
     Route: 061
     Dates: end: 20160505

REACTIONS (4)
  - Device use issue [Unknown]
  - Drug ineffective [Unknown]
  - Product odour abnormal [Unknown]
  - Product quality issue [Unknown]

NARRATIVE: CASE EVENT DATE: 20160505
